FAERS Safety Report 14544705 (Version 1)
Quarter: 2018Q1

REPORT INFORMATION
  Report Type: Report from Study
  Country: CA (occurrence: CA)
  Receive Date: 20180217
  Receipt Date: 20180217
  Transmission Date: 20180509
  Serious: Yes (Life-Threatening, Hospitalization, Other)
  Sender: FDA-Public Use
  Company Number: CA-AMGEN-CANSL2018022227

PATIENT
  Age: 71 Year
  Sex: Male
  Weight: 43 kg

DRUGS (1)
  1. KYPROLIS [Suspect]
     Active Substance: CARFILZOMIB
     Indication: PLASMA CELL MYELOMA
     Dosage: 75 MG, UNK (OD X2 X 3 WEEKS)
     Route: 042

REACTIONS (1)
  - Hospitalisation [Not Recovered/Not Resolved]
